FAERS Safety Report 5833798-6 (Version None)
Quarter: 2008Q3

REPORT INFORMATION
  Report Type: 
  Country: None (occurrence: None)
  Receive Date: 20080804
  Receipt Date: 20080804
  Transmission Date: 20090109
  Serious: No
  Sender: FDA-Public Use
  Company Number: None

PATIENT
  Age: 22 Year
  Sex: Male
  Weight: 72.5755 kg

DRUGS (2)
  1. LEXAPRO [Suspect]
     Indication: GENERALISED ANXIETY DISORDER
     Dosage: 20 MG PO
     Route: 048
     Dates: start: 20041114, end: 20080801
  2. LEXAPRO [Suspect]
     Indication: OBSESSIVE-COMPULSIVE DISORDER
     Dosage: 20 MG PO
     Route: 048
     Dates: start: 20041114, end: 20080801

REACTIONS (8)
  - ALTERED STATE OF CONSCIOUSNESS [None]
  - ANGER [None]
  - CRYING [None]
  - DRUG WITHDRAWAL SYNDROME [None]
  - FATIGUE [None]
  - HEADACHE [None]
  - INFLUENZA LIKE ILLNESS [None]
  - NONSPECIFIC REACTION [None]
